FAERS Safety Report 12257922 (Version 1)
Quarter: 2016Q2

REPORT INFORMATION
  Report Type: Spontaneous
  Country: US (occurrence: US)
  Receive Date: 20160412
  Receipt Date: 20160412
  Transmission Date: 20160815
  Serious: Yes (Other)
  Sender: FDA-Public Use
  Company Number: US-MDT-ADR-2016-00395

PATIENT
  Age: 25 Year
  Sex: Male

DRUGS (3)
  1. SENOKOT [Suspect]
     Active Substance: SENNOSIDES
  2. LIORESAL [Suspect]
     Active Substance: BACLOFEN
     Dosage: 875 MCG/DAY
     Route: 037
  3. TIZANIDINE. [Suspect]
     Active Substance: TIZANIDINE

REACTIONS (6)
  - Respiratory rate decreased [Unknown]
  - Fatigue [Unknown]
  - Hypotonia [Unknown]
  - Hyperhidrosis [Unknown]
  - Overdose [Unknown]
  - Apnoea [Unknown]
